FAERS Safety Report 20098409 (Version 1)
Quarter: 2021Q4

REPORT INFORMATION
  Report Type: Spontaneous
  Country: FR (occurrence: FR)
  Receive Date: 20211122
  Receipt Date: 20211122
  Transmission Date: 20220303
  Serious: Yes (Other)
  Sender: FDA-Public Use
  Company Number: FR-FRESENIUS KABI-FK202108950

PATIENT
  Age: 44 Year
  Sex: Female

DRUGS (7)
  1. CYTARABINE [Suspect]
     Active Substance: CYTARABINE
     Indication: Breast cancer
     Dosage: UNK,4 CYCLE
     Route: 065
  2. EPIRUBICIN [Suspect]
     Active Substance: EPIRUBICIN
     Indication: Breast cancer
     Dosage: UNK,4 CYCLE
     Route: 065
  3. PACLITAXEL [Suspect]
     Active Substance: PACLITAXEL
     Indication: Product used for unknown indication
     Dosage: UNK,CURE-8 (CANCELED)
     Route: 041
     Dates: start: 20210720
  4. PACLITAXEL [Suspect]
     Active Substance: PACLITAXEL
     Dosage: 120 MILLIGRAM, QW, CURE-9 (DOSAGE REDUCED OF 20 PERCENT)
     Route: 041
     Dates: start: 20210727, end: 20210727
  5. PACLITAXEL [Suspect]
     Active Substance: PACLITAXEL
     Dosage: 90 MILLIGRAM, QW, CURE-10 (DOSAGE REDUCED OF 40 PERCENT)
     Route: 041
     Dates: start: 20210803, end: 20210803
  6. PACLITAXEL [Suspect]
     Active Substance: PACLITAXEL
     Dosage: 150 MILLIGRAM, QW, PACLITAXEL 6 MG/ML SOLUTION TO DILUTE FOR INFUSION CURE-1 TO CURE-5
     Route: 041
     Dates: start: 20210601, end: 20210629
  7. PACLITAXEL [Suspect]
     Active Substance: PACLITAXEL
     Dosage: 150 MILLIGRAM, QW, CURE-6 AND CURE-7
     Route: 041
     Dates: start: 20210706, end: 20210713

REACTIONS (11)
  - Oedema peripheral [Unknown]
  - Skin lesion [Unknown]
  - Weight increased [Unknown]
  - Muscle spasms [Unknown]
  - Tinnitus [Unknown]
  - Paraesthesia [Unknown]
  - Musculoskeletal stiffness [Unknown]
  - Pain [Unknown]
  - Sensitive skin [Unknown]
  - Neuropathy peripheral [Not Recovered/Not Resolved]
  - Palmar-plantar erythrodysaesthesia syndrome [Unknown]

NARRATIVE: CASE EVENT DATE: 20210720
